FAERS Safety Report 18639426 (Version 2)
Quarter: 2021Q1

REPORT INFORMATION
  Report Type: Report from Study
  Country: US (occurrence: US)
  Receive Date: 20201219
  Receipt Date: 20210216
  Transmission Date: 20210419
  Serious: Yes (Death)
  Sender: FDA-Public Use
  Company Number: US-AMGEN-USACT2020206356

PATIENT
  Age: 50 Year
  Sex: Male

DRUGS (6)
  1. TRAMETINIB [Concomitant]
     Active Substance: TRAMETINIB
     Dosage: UNK
     Dates: start: 20140407, end: 20140819
  2. TALIMOGENE LAHERPAREPVEC [Suspect]
     Active Substance: TALIMOGENE LAHERPAREPVEC
     Dosage: 2 MILLILITER
     Route: 065
     Dates: start: 20130806, end: 20140221
  3. TALIMOGENE LAHERPAREPVEC [Suspect]
     Active Substance: TALIMOGENE LAHERPAREPVEC
     Dosage: 1 MILLILITER
     Route: 065
     Dates: start: 20130723
  4. TALIMOGENE LAHERPAREPVEC [Suspect]
     Active Substance: TALIMOGENE LAHERPAREPVEC
     Indication: MALIGNANT MELANOMA
     Dosage: 2 MILLILITER
     Route: 065
     Dates: start: 20130702
  5. IPILIMUMAB [Suspect]
     Active Substance: IPILIMUMAB
     Indication: MALIGNANT MELANOMA
     Dosage: 253.8 MILLIGRAM
     Route: 065
     Dates: start: 20130806, end: 20131008
  6. DABRAFENIB [Concomitant]
     Active Substance: DABRAFENIB
     Dosage: UNK
     Dates: start: 20140407, end: 20140819

REACTIONS (1)
  - Death [Fatal]

NARRATIVE: CASE EVENT DATE: 20140819
